FAERS Safety Report 5333682-0 (Version None)
Quarter: 2007Q2

REPORT INFORMATION
  Report Type: 
  Country: None (occurrence: None)
  Receive Date: 20070524
  Receipt Date: 20070523
  Transmission Date: 20071010
  Serious: Yes (Other)
  Sender: FDA-Public Use
  Company Number: A0652600A

PATIENT
  Age: 3 Year
  Sex: Male

DRUGS (1)
  1. PAXIL [Suspect]
     Indication: DRUG USE FOR UNKNOWN INDICATION

REACTIONS (3)
  - ASPERGER'S DISORDER [None]
  - DRUG EXPOSURE DURING PREGNANCY [None]
  - SOCIAL PROBLEM [None]
